FAERS Safety Report 4535706-7 (Version None)
Quarter: 2004Q4

REPORT INFORMATION
  Report Type: 
  Country: None (occurrence: None)
  Receive Date: 20041223
  Receipt Date: 20031212
  Transmission Date: 20050328
  Serious: No
  Sender: FDA-Public Use
  Company Number: US-GLAXOSMITHKLINE-A0443005A

PATIENT
  Age: 39 Year
  Sex: Female

DRUGS (1)
  1. FLONASE [Suspect]
     Route: 045
     Dates: start: 20030101

REACTIONS (3)
  - DYSGEUSIA [None]
  - PARANASAL SINUS HYPERSECRETION [None]
  - RHINORRHOEA [None]
